FAERS Safety Report 23677389 (Version 5)
Quarter: 2024Q2

REPORT INFORMATION
  Report Type: Spontaneous
  Country: US (occurrence: US)
  Receive Date: 20240327
  Receipt Date: 20240429
  Transmission Date: 20240716
  Serious: No
  Sender: FDA-Public Use
  Company Number: US-PFIZER INC-202400064801

PATIENT
  Age: 8 Year
  Sex: Male
  Weight: 22.222 kg

DRUGS (1)
  1. SOMATROPIN [Suspect]
     Active Substance: SOMATROPIN
     Indication: Short stature
     Dosage: 0.6 MG, DAILY

REACTIONS (2)
  - Drug dose omission by device [Unknown]
  - Device leakage [Unknown]
